FAERS Safety Report 8940622 (Version 1)
Quarter: 2012Q4

REPORT INFORMATION
  Report Type: 
  Country: SE (occurrence: SE)
  Receive Date: 20121203
  Receipt Date: 20121203
  Transmission Date: 20130627
  Serious: Yes (Other)
  Sender: FDA-Public Use
  Company Number: SE-JNJFOC-20121111194

PATIENT
  Age: 53 Year
  Sex: Male
  Weight: 50 kg

DRUGS (6)
  1. XEPLION [Suspect]
     Indication: DELUSION
     Dosage: loading dose on day 1
     Route: 030
  2. XEPLION [Suspect]
     Indication: DELUSION
     Dosage: loading dose on day 8
     Route: 030
  3. CLOPIDOGREL [Concomitant]
     Route: 065
  4. SERTRALINE [Concomitant]
     Route: 065
  5. MIRTAZAPIN [Concomitant]
     Route: 065
  6. ZOPIKLON [Concomitant]
     Route: 065

REACTIONS (1)
  - Haemoglobin decreased [Recovering/Resolving]
